FAERS Safety Report 9929854 (Version 1)
Quarter: 2014Q1

REPORT INFORMATION
  Report Type: Report from Study
  Country: US (occurrence: US)
  Receive Date: 20140227
  Receipt Date: 20140227
  Transmission Date: 20141002
  Serious: No
  Sender: FDA-Public Use
  Company Number: US-ABBVIE-12P-163-0992367-00

PATIENT
  Sex: Female
  Weight: 79.45 kg

DRUGS (3)
  1. HUMIRA (ABBOTT) [Suspect]
     Indication: BEHCET^S SYNDROME
     Dates: start: 201208
  2. SINGULAIRE (NON-ABBOTT) [Concomitant]
     Indication: ASTHMA
  3. ZIRTEC (NON-ABBOTT) [Concomitant]
     Indication: HYPERSENSITIVITY

REACTIONS (3)
  - Off label use [Not Recovered/Not Resolved]
  - Therapeutic response unexpected [Not Recovered/Not Resolved]
  - Unevaluable event [Not Recovered/Not Resolved]
